FAERS Safety Report 25720135 (Version 1)
Quarter: 2025Q3

REPORT INFORMATION
  Report Type: Report from Study
  Country: US (occurrence: US)
  Receive Date: 20250825
  Receipt Date: 20250825
  Transmission Date: 20251021
  Serious: Yes (Other)
  Sender: AMGEN
  Company Number: US-AMGEN-USASL2024227622

PATIENT
  Age: 68 Year
  Sex: Female
  Weight: 61.315 kg

DRUGS (11)
  1. IMDELLTRA [Suspect]
     Active Substance: TARLATAMAB-DLLE
     Indication: Product used for unknown indication
     Route: 040
     Dates: end: 20241113
  2. IMDELLTRA [Suspect]
     Active Substance: TARLATAMAB-DLLE
     Route: 040
     Dates: start: 20241204
  3. IMDELLTRA [Suspect]
     Active Substance: TARLATAMAB-DLLE
     Route: 040
     Dates: start: 20241219
  4. IMDELLTRA [Suspect]
     Active Substance: TARLATAMAB-DLLE
     Route: 040
     Dates: start: 202508
  5. DECADRON [Concomitant]
     Active Substance: DEXAMETHASONE
  6. DECADRON [Concomitant]
     Active Substance: DEXAMETHASONE
     Dates: start: 20250818
  7. SODIUM CHLORIDE [Concomitant]
     Active Substance: SODIUM CHLORIDE
  8. SODIUM CHLORIDE [Concomitant]
     Active Substance: SODIUM CHLORIDE
  9. SODIUM CHLORIDE [Concomitant]
     Active Substance: SODIUM CHLORIDE
     Dates: start: 20250818
  10. HEPARIN [Concomitant]
     Active Substance: HEPARIN SODIUM
  11. ZOMETA [Concomitant]
     Active Substance: ZOLEDRONIC ACID
     Dates: start: 20250818

REACTIONS (6)
  - Confusional state [Unknown]
  - Neutropenia [Unknown]
  - Decreased appetite [Unknown]
  - Infusion site haemorrhage [Unknown]
  - Blood pressure increased [Unknown]
  - Abnormal loss of weight [Unknown]

NARRATIVE: CASE EVENT DATE: 20241113
